FAERS Safety Report 19139984 (Version 1)
Quarter: 2021Q2

REPORT INFORMATION
  Report Type: Spontaneous
  Country: US (occurrence: US)
  Receive Date: 20210415
  Receipt Date: 20210415
  Transmission Date: 20210717
  Serious: No
  Sender: FDA-Public Use
  Company Number: US-ORGANON-2102USA001707

PATIENT
  Sex: Female

DRUGS (1)
  1. ASMANEX HFA [Suspect]
     Active Substance: MOMETASONE FUROATE
     Indication: COUGH
     Dosage: 1 PUFF ONCE DAILY

REACTIONS (6)
  - Product leakage [Unknown]
  - Device breakage [Unknown]
  - Incorrect dose administered [Unknown]
  - Device malfunction [Unknown]
  - Product use in unapproved indication [Unknown]
  - Poor quality device used [Unknown]

NARRATIVE: CASE EVENT DATE: 20210202
